FAERS Safety Report 9247387 (Version 1)
Quarter: 2013Q2

REPORT INFORMATION
  Report Type: Spontaneous
  Country: US (occurrence: US)
  Receive Date: 20130423
  Receipt Date: 20130423
  Transmission Date: 20140414
  Serious: No
  Sender: FDA-Public Use
  Company Number: US-009507513-1304USA013671

PATIENT
  Sex: Female

DRUGS (2)
  1. SAPHRIS [Suspect]
     Dosage: 5 MG, BID
     Route: 060
     Dates: end: 20130405
  2. EFFEXOR [Concomitant]

REACTIONS (1)
  - Hypersomnia [Unknown]
